FAERS Safety Report 4673785-7 (Version None)
Quarter: 2005Q2

REPORT INFORMATION
  Report Type: 
  Country: None (occurrence: None)
  Receive Date: 20050524
  Receipt Date: 20050511
  Transmission Date: 20051028
  Serious: Yes (Death)
  Sender: FDA-Public Use
  Company Number: HQWYE687512MAY05

PATIENT
  Age: 75 Year
  Sex: Female

DRUGS (4)
  1. ETODOLAC [Suspect]
     Indication: ANALGESIC EFFECT
     Dosage: 400 MG 1X PER 1 DAY, ORAL
     Route: 048
     Dates: start: 20040724, end: 20040824
  2. ETODOLAC [Suspect]
     Indication: OSTEOARTHRITIS
     Dosage: 400 MG 1X PER 1 DAY, ORAL
     Route: 048
     Dates: start: 20040724, end: 20040824
  3. NICARDIPINE HCL [Suspect]
     Indication: HYPERTENSION
     Dosage: 80 MG 1X PER 1 DAY, ORAL
     Route: 048
     Dates: start: 20040513, end: 20040824
  4. VALSARTAN [Suspect]
     Indication: HYPERTENSION
     Dosage: 20 MG 1X PER 1 DAY, ORAL
     Route: 048
     Dates: start: 20040513, end: 20040824

REACTIONS (3)
  - ACUTE MYOCARDIAL INFARCTION [None]
  - ARRHYTHMIA [None]
  - CARDIAC FAILURE [None]
